FAERS Safety Report 15231484 (Version 1)
Quarter: 2018Q3

REPORT INFORMATION
  Report Type: Spontaneous
  Country: GB (occurrence: GB)
  Receive Date: 20180802
  Receipt Date: 20180802
  Transmission Date: 20181010
  Serious: Yes (Hospitalization)
  Sender: FDA-Public Use
  Company Number: PHHY2018GB057858

PATIENT
  Age: 69 Year
  Sex: Female

DRUGS (2)
  1. TAFINLAR [Suspect]
     Active Substance: DABRAFENIB MESYLATE
     Indication: MALIGNANT MELANOMA
     Route: 065
  2. MEKINIST [Suspect]
     Active Substance: TRAMETINIB DIMETHYL SULFOXIDE
     Indication: MALIGNANT MELANOMA
     Route: 065

REACTIONS (12)
  - Pain [Unknown]
  - Liver function test increased [Unknown]
  - Diarrhoea [Unknown]
  - Urinary tract infection [Unknown]
  - Pyrexia [Unknown]
  - Blood calcium increased [Unknown]
  - Infection [Unknown]
  - Chromaturia [Unknown]
  - Blood magnesium decreased [Unknown]
  - Nausea [Unknown]
  - Lethargy [Unknown]
  - Vomiting [Unknown]
